FAERS Safety Report 9816549 (Version 2)
Quarter: 2014Q3

REPORT INFORMATION
  Report Type: Spontaneous
  Country: CN (occurrence: CN)
  Receive Date: 20140114
  Receipt Date: 20140728
  Transmission Date: 20150326
  Serious: Yes (Death)
  Sender: FDA-Public Use
  Company Number: CN-BAXTER-2014BAX000845

PATIENT
  Sex: Male
  Weight: 73 kg

DRUGS (1)
  1. DIANEAL [Suspect]
     Active Substance: CALCIUM CHLORIDE\DEXTROSE\MAGNESIUM CHLORIDE\SODIUM CHLORIDE\SODIUM LACTATE
     Indication: PERITONEAL DIALYSIS
     Dosage: 4 BAGS
     Route: 033
     Dates: start: 20090320, end: 20111206

REACTIONS (2)
  - Shock haemorrhagic [Fatal]
  - Gastrointestinal haemorrhage [Fatal]
